FAERS Safety Report 20415831 (Version 8)
Quarter: 2022Q2

REPORT INFORMATION
  Report Type: Spontaneous
  Country: US (occurrence: US)
  Receive Date: 20220202
  Receipt Date: 20220519
  Transmission Date: 20220721
  Serious: Yes (Hospitalization, Other)
  Sender: FDA-Public Use
  Company Number: US-BEH-2022141402

PATIENT
  Age: 56 Year
  Sex: Female

DRUGS (5)
  1. HIZENTRA [Suspect]
     Active Substance: HUMAN IMMUNOGLOBULIN G
     Indication: Immunodeficiency common variable
     Dosage: 14 GRAM, QOD
     Route: 058
     Dates: start: 202201
  2. HIZENTRA [Suspect]
     Active Substance: HUMAN IMMUNOGLOBULIN G
     Dosage: 4 GRAM, BIW
     Route: 058
     Dates: start: 20220121
  3. HIZENTRA [Suspect]
     Active Substance: HUMAN IMMUNOGLOBULIN G
     Dosage: 3 GRAM, BIW
     Route: 058
     Dates: start: 20220121
  4. HIZENTRA [Suspect]
     Active Substance: HUMAN IMMUNOGLOBULIN G
     Dosage: 7 GRAM, BIW
     Route: 058
     Dates: start: 202201
  5. ORENCIA [Concomitant]
     Active Substance: ABATACEPT
     Route: 065

REACTIONS (5)
  - COVID-19 pneumonia [Unknown]
  - Depressed mood [Unknown]
  - Insurance issue [Unknown]
  - Viral infection [Unknown]
  - Wrist surgery [Unknown]

NARRATIVE: CASE EVENT DATE: 20220322
